FAERS Safety Report 24784978 (Version 1)
Quarter: 2024Q4

REPORT INFORMATION
  Report Type: Spontaneous
  Country: GB (occurrence: GB)
  Receive Date: 20241228
  Receipt Date: 20241228
  Transmission Date: 20250115
  Serious: Yes (Hospitalization, Other)
  Sender: AUROBINDO
  Company Number: GB-MHRA-MIDB-7b954a15-b777-4049-aade-e4c5477ac722

PATIENT
  Age: 76 Year
  Sex: Male

DRUGS (20)
  1. SIMVASTATIN [Suspect]
     Active Substance: SIMVASTATIN
     Indication: Product used for unknown indication
     Dosage: 20 MILLIGRAM
     Route: 065
  2. AZATHIOPRINE [Concomitant]
     Active Substance: AZATHIOPRINE
     Indication: Product used for unknown indication
     Dosage: 25 MILLIGRAM (25 MG 1OM- HAS NOT BEEN USING RECENTLY DUE TO ILLNESS)
     Route: 065
  3. ALLOPURINOL [Concomitant]
     Active Substance: ALLOPURINOL
     Indication: Product used for unknown indication
     Dosage: 100 MG TABLETS ONE TO BE TAKEN DAILY
     Route: 065
  4. BEROCCA [Concomitant]
     Active Substance: VITAMINS
     Indication: Product used for unknown indication
     Route: 065
  5. CODEINE [Concomitant]
     Active Substance: CODEINE
     Indication: Product used for unknown indication
     Dosage: 15 MILLIGRAM (15 MG TABLETS TAKE 1-2 EVERY 6 HRS PRN IF NO RELIEF WITH PARACETAMOL 100 TABLET)
     Route: 065
  6. CIPROFLOXACIN\DEXAMETHASONE [Concomitant]
     Active Substance: CIPROFLOXACIN\DEXAMETHASONE
     Indication: Product used for unknown indication
     Route: 065
  7. CYCLIZINE [Concomitant]
     Active Substance: CYCLIZINE
     Indication: Product used for unknown indication
     Dosage: 50 MILLIGRAM, 3 TIMES A DAY (50 MG TABLETS ONE TO BE TAKEN UP TO THREE TIMES A DAY FOR NAUSEA 42 TAB
     Route: 065
  8. Decapeptyl [Concomitant]
     Indication: Product used for unknown indication
     Dosage: 22.5 MILLIGRAM (22.5 MG POWDER AND SOLVENT FOR SUSPENSION FOR INJECTION VIALS AS DIRECTED - DUE THIS
     Route: 065
  9. DERMOL [Concomitant]
     Active Substance: BENZALKONIUM CHLORIDE\CHLORHEXIDINE HYDROCHLORIDE\ISOPROPYL MYRISTATE\PARAFFIN
     Indication: Product used for unknown indication
     Dosage: 500 LOTION APPLY TO SKIN OR USE AS A SOAP SUBSTITUTE - PRN
     Route: 065
  10. DERMOL [Concomitant]
     Active Substance: BENZALKONIUM CHLORIDE\CHLORHEXIDINE HYDROCHLORIDE\ISOPROPYL MYRISTATE\PARAFFIN
     Dosage: 600 BATH EMOLLIENT ADD 15 ML-30 ML TO BATH WATER
     Route: 065
  11. DERMOL [Concomitant]
     Active Substance: BENZALKONIUM CHLORIDE\CHLORHEXIDINE HYDROCHLORIDE\ISOPROPYL MYRISTATE\PARAFFIN
     Dosage: 500 GRAM BOTTLE APPLY TO SKIN OR USE AS A SOAP SUBSTITUTE - PRN
     Route: 065
  12. DIAZEPAM [Concomitant]
     Active Substance: DIAZEPAM
     Indication: Anxiety
     Dosage: 3 TIMES A DAY (DIAZEPAM 2 MG TABLETS 1-2 TO BE TAKEN THREE TIMES A DAY PRN FOR ACUTE ANXIETY 28 TABL
     Route: 065
  13. DEXAMETHASONE [Concomitant]
     Active Substance: DEXAMETHASONE
     Indication: Product used for unknown indication
     Dosage: 500 MICROGRAM TABLETS TO BE TAKEN AS DIRECTED- TAKES 1 OM DOSE INCREASED BY INPAT ONCOL
     Route: 065
  14. ENSURE PLUS JUCE [Concomitant]
     Indication: Product used for unknown indication
     Dosage: DAILY (TWO TO BE TAKEN EACH DAY 36 X 220ML - MILKSHAKE ON TTO)
     Route: 065
  15. MINERAL OIL\PETROLATUM\WAX, EMULSIFYING [Concomitant]
     Active Substance: MINERAL OIL\PETROLATUM\WAX, EMULSIFYING
     Indication: Product used for unknown indication
     Dosage: AS NEEDED- PRN
     Route: 065
  16. SIMVASTATIN [Concomitant]
     Active Substance: SIMVASTATIN
     Indication: Product used for unknown indication
     Dosage: 20 MG TABLETS ONE TO BE TAKEN AT NIGHT
     Route: 065
  17. LANSOPRAZOLE [Concomitant]
     Active Substance: LANSOPRAZOLE
     Indication: Product used for unknown indication
     Dosage: 30 MILLIGRAM, ONCE A DAY (30 MG GASTRO-RESISTANT CAPSULES ONE TO BE TAKEN EACH MORNING)
     Route: 065
  18. TRAMAZOLINE [Concomitant]
     Active Substance: TRAMAZOLINE
     Indication: Product used for unknown indication
     Route: 065
  19. TRIMOVATE [Concomitant]
     Active Substance: CLOBETASONE BUTYRATE\NYSTATIN\OXYTETRACYCLINE CALCIUM
     Indication: Product used for unknown indication
     Dosage: APPLY BD PRN- PRN
     Route: 065
  20. VITAMIN D NOS [Concomitant]
     Active Substance: CHOLECALCIFEROL\ERGOCALCIFEROL
     Indication: Product used for unknown indication
     Route: 065

REACTIONS (1)
  - Neck pain [Unknown]
